FAERS Safety Report 11772507 (Version 2)
Quarter: 2015Q4

REPORT INFORMATION
  Report Type: Spontaneous
  Country: RO (occurrence: RO)
  Receive Date: 20151124
  Receipt Date: 20151130
  Transmission Date: 20160304
  Serious: Yes (Congenital Anomaly, Other)
  Sender: FDA-Public Use
  Company Number: RO-VIIV HEALTHCARE LIMITED-RO2015GSK163542

PATIENT
  Age: 5 Year
  Sex: Female

DRUGS (3)
  1. LOPINAVIR [Suspect]
     Active Substance: LOPINAVIR
     Indication: HIV INFECTION
     Route: 064
  2. ZIDOVUDINE + LAMIVUDINE [Suspect]
     Active Substance: LAMIVUDINE\ZIDOVUDINE
     Indication: HIV INFECTION
     Route: 064
  3. NORVIR [Suspect]
     Active Substance: RITONAVIR
     Indication: HIV INFECTION
     Route: 064

REACTIONS (7)
  - Chest pain [Unknown]
  - Speech disorder developmental [Unknown]
  - Neck deformity [Unknown]
  - Jaundice neonatal [Unknown]
  - Congenital hypothyroidism [Unknown]
  - Dysphonia [Unknown]
  - Macroglossia [Unknown]
